FAERS Safety Report 6554244-3 (Version None)
Quarter: 2010Q1

REPORT INFORMATION
  Report Type: 
  Country: None (occurrence: None)
  Receive Date: 20100127
  Receipt Date: 20100114
  Transmission Date: 20100710
  Serious: Yes (Other)
  Sender: FDA-Public Use
  Company Number: US-WATSON-2010-00618

PATIENT
  Age: 29 Year
  Sex: Male

DRUGS (1)
  1. METHYLPREDNISOLONE ACETATE [Suspect]
     Indication: ARTHRALGIA
     Dosage: 40 MG, SINGLE
     Route: 014

REACTIONS (1)
  - CHORIORETINOPATHY [None]
